FAERS Safety Report 6717348-8 (Version None)
Quarter: 2010Q2

REPORT INFORMATION
  Report Type: 
  Country: None (occurrence: None)
  Receive Date: 20100510
  Receipt Date: 20100427
  Transmission Date: 20101027
  Serious: Yes (Death, Hospitalization)
  Sender: FDA-Public Use
  Company Number: JP-SOLVAY-00309004431

PATIENT
  Age: 26352 Day
  Sex: Male
  Weight: 48 kg

DRUGS (23)
  1. TS-1 [Concomitant]
     Indication: PROPHYLAXIS
     Dosage: DAILY DOSE: 80 MILLIGRAM(S)
     Route: 048
     Dates: start: 20090716, end: 20090805
  2. TS-1 [Concomitant]
     Dosage: DAILY DOSE: 80 MILLIGRAM(S)
     Route: 048
     Dates: start: 20090820, end: 20090825
  3. GEMZAR [Concomitant]
     Indication: PROPHYLAXIS
     Dosage: DAILY DOSE: 1000 MILLIGRAM(S)
     Route: 042
     Dates: start: 20090716, end: 20090716
  4. GEMZAR [Concomitant]
     Dosage: DAILY DOSE: 1000 MILLIGRAM(S)
     Route: 042
     Dates: start: 20090806, end: 20090806
  5. GEMZAR [Concomitant]
     Dosage: DAILY DOSE: 1000 MILLIGRAM(S)
     Route: 042
     Dates: start: 20090826, end: 20090826
  6. GEMZAR [Concomitant]
     Dosage: DAILY DOSE: 1000 MILLIGRAM(S)
     Route: 042
     Dates: start: 20090910, end: 20090910
  7. ISOTONIC SODIUM CHLORIDE SOLUTION [Concomitant]
     Indication: PROPHYLAXIS
     Dosage: DAILY DOSE: 50 MILLILITRE(S)
     Route: 042
     Dates: start: 20090716, end: 20090716
  8. ISOTONIC SODIUM CHLORIDE SOLUTION [Concomitant]
     Dosage: DAILY DOSE: 50 MILLILITRE(S)
     Route: 042
     Dates: start: 20090806, end: 20090806
  9. ISOTONIC SODIUM CHLORIDE SOLUTION [Concomitant]
     Dosage: DAILY DOSE: 50 MILLILITRE(S)
     Route: 042
     Dates: start: 20090826, end: 20090826
  10. ISOTONIC SODIUM CHLORIDE SOLUTION [Concomitant]
     Dosage: DAILY DOSE: 50 MILLILITRE(S)
     Route: 042
     Dates: start: 20090910, end: 20090910
  11. KYTRIL [Concomitant]
     Indication: VOMITING
     Dosage: DAILY DOSE: 3 MILLIGRAM(S)
     Route: 042
     Dates: start: 20090716, end: 20090716
  12. KYTRIL [Concomitant]
     Dosage: DAILY DOSE: 3 MILLIGRAM(S)
     Route: 042
     Dates: start: 20090806, end: 20090806
  13. KYTRIL [Concomitant]
     Dosage: DAILY DOSE: 3 MILLIGRAM(S)
     Route: 042
     Dates: start: 20090826, end: 20090826
  14. KYTRIL [Concomitant]
     Dosage: DAILY DOSE: 3 MILLIGRAM(S)
     Route: 042
     Dates: start: 20090910, end: 20090910
  15. LASIX [Concomitant]
     Indication: ASCITES
     Dosage: DAILY DOSE: 20 MILLIGRAM(S)
     Route: 048
     Dates: start: 20090623, end: 20091119
  16. GASPORT-D [Concomitant]
     Indication: BLOOD PH INCREASED
     Dosage: DAILY DOSE: 40 MILLIGRAM(S)
     Route: 048
     Dates: start: 20090623, end: 20091119
  17. CREON [Suspect]
     Indication: PANCREATIC ENZYME ABNORMALITY
     Dosage: DAILY DOSE: 12 DOSAGE FORM
     Route: 048
     Dates: start: 20090624, end: 20091119
  18. CREON [Suspect]
     Dosage: DAILY DOSE: 2 CAPSULE, FREQUENCY: AS NEEDED.
     Route: 048
     Dates: start: 20090624, end: 20091119
  19. ENTERONON-R [Concomitant]
     Indication: ANTIBIOTIC PROPHYLAXIS
     Dosage: DAILY DOSE: 3 GRAM(S)
     Route: 048
     Dates: start: 20091019, end: 20091025
  20. ENTERONON-R [Concomitant]
     Dosage: DAILY DOSE: 3 GRAM(S)
     Route: 048
     Dates: start: 20091112, end: 20091118
  21. MUCOSTA [Concomitant]
     Indication: GASTRITIS PROPHYLAXIS
     Dosage: DAILY DOSE: 300 MILLIGRAM(S)
     Route: 048
     Dates: start: 20091015, end: 20091024
  22. MUCOSTA [Concomitant]
     Dosage: DAILY DOSE: 300 MILLIGRAM(S)
     Route: 048
     Dates: start: 20091112, end: 20091118
  23. OMNIPAQUE 300 [Concomitant]
     Indication: ANGIOGRAM
     Dosage: DAILY DOSE: 100 MILLILITRE(S)
     Route: 042
     Dates: start: 20090827, end: 20090827

REACTIONS (3)
  - CHOLANGITIS [None]
  - HEPATIC FAILURE [None]
  - METASTASES TO LIVER [None]
